FAERS Safety Report 4409435-4 (Version None)
Quarter: 2004Q3

REPORT INFORMATION
  Report Type: 
  Country: None (occurrence: None)
  Receive Date: 20040727
  Receipt Date: 20040727
  Transmission Date: 20050211
  Serious: No
  Sender: FDA-Public Use
  Company Number: None

PATIENT
  Sex: Female
  Weight: 83.9154 kg

DRUGS (3)
  1. ADRIAMYCIN PFS [Suspect]
     Indication: BREAST CANCER
     Dosage: 472 MG OVER 4 CYCLES (TOTAL DOSE)
     Dates: start: 20001013, end: 20001227
  2. CYTOXAN [Suspect]
     Indication: BREAST CANCER
     Dosage: 4720 MG (TOTAL DOSE)
     Dates: start: 20001013, end: 20001227
  3. PACLITAXEL [Suspect]
     Indication: BREAST CANCER
     Dosage: 340 MG 80MG/M2 Q WK
     Dates: start: 20010119, end: 20010323

REACTIONS (5)
  - ATRIAL FIBRILLATION [None]
  - CARDIAC STRESS TEST ABNORMAL [None]
  - CHEST DISCOMFORT [None]
  - DYSPNOEA EXERTIONAL [None]
  - EJECTION FRACTION DECREASED [None]
